FAERS Safety Report 8202306-7 (Version None)
Quarter: 2012Q1

REPORT INFORMATION
  Report Type: 
  Country: None (occurrence: None)
  Receive Date: 20120308
  Receipt Date: 20120222
  Transmission Date: 20120608
  Serious: Yes (Other)
  Sender: FDA-Public Use
  Company Number: UCM201202-000018

PATIENT
  Sex: Female

DRUGS (3)
  1. TOPIRAMATE [Suspect]
     Dosage: 400 MG,
  2. PHENYTOIN [Suspect]
     Dosage: 500 MG,
  3. CARBAMAZEPINE [Suspect]
     Dosage: 1000 MG,

REACTIONS (3)
  - ABORTION INDUCED [None]
  - MULTIPLE CONGENITAL ABNORMALITIES [None]
  - MATERNAL DRUGS AFFECTING FOETUS [None]
